FAERS Safety Report 23428971 (Version 1)
Quarter: 2024Q1

REPORT INFORMATION
  Report Type: Spontaneous
  Country: US (occurrence: US)
  Receive Date: 20240122
  Receipt Date: 20240122
  Transmission Date: 20240410
  Serious: Yes (Hospitalization)
  Sender: FDA-Public Use
  Company Number: US-TEVA-VS-3146911

PATIENT
  Age: 69 Year

DRUGS (7)
  1. BENDAMUSTINE [Suspect]
     Active Substance: BENDAMUSTINE
     Indication: B-cell lymphoma
     Dosage: RECEIVED TWO CYCLES
     Route: 065
  2. BORTEZOMIB [Suspect]
     Active Substance: BORTEZOMIB
     Indication: Waldenstrom^s macroglobulinaemia
     Route: 065
  3. RITUXIMAB [Suspect]
     Active Substance: RITUXIMAB
     Indication: B-cell lymphoma
     Dosage: RECEIVED FIVE WEEKLY INFUSION
     Route: 065
  4. RITUXIMAB [Suspect]
     Active Substance: RITUXIMAB
     Indication: B-cell lymphoma
     Dosage: RECEIVED TWO CYCLES
     Route: 065
  5. RITUXIMAB [Suspect]
     Active Substance: RITUXIMAB
     Indication: B-cell lymphoma
     Dosage: DOSE UNKNOWN AND RECEIVED TWO CYCLES
     Route: 065
  6. DEXAMETHASONE [Suspect]
     Active Substance: DEXAMETHASONE
     Indication: Waldenstrom^s macroglobulinaemia
     Route: 065
  7. BEVACIZUMAB [Concomitant]
     Active Substance: BEVACIZUMAB
     Indication: Waldenstrom^s macroglobulinaemia
     Dosage: RECEIVED BILATERAL
     Route: 050

REACTIONS (5)
  - Blood immunoglobulin M increased [Recovering/Resolving]
  - Hyperviscosity syndrome [Recovering/Resolving]
  - Visual impairment [Recovering/Resolving]
  - Auditory disorder [Recovering/Resolving]
  - Drug ineffective [Unknown]
